FAERS Safety Report 11815596 (Version 1)
Quarter: 2015Q4

REPORT INFORMATION
  Report Type: Report from Study
  Country: US (occurrence: US)
  Receive Date: 20151209
  Receipt Date: 20151209
  Transmission Date: 20160305
  Serious: No
  Sender: FDA-Public Use
  Company Number: PHEH2013US026551

PATIENT
  Sex: Female

DRUGS (2)
  1. MYFORTIC [Suspect]
     Active Substance: MYCOPHENOLATE SODIUM
     Indication: CONGENITAL SYPHILITIC OSTEOCHONDRITIS
     Dosage: 360 MG, BID
  2. MYFORTIC [Suspect]
     Active Substance: MYCOPHENOLATE SODIUM
     Indication: OFF LABEL USE
     Dosage: 1080 MG, BID
     Route: 048

REACTIONS (3)
  - Gait disturbance [Unknown]
  - Incorrect dose administered [Unknown]
  - Anxiety [Unknown]
